FAERS Safety Report 16903072 (Version 3)
Quarter: 2020Q2

REPORT INFORMATION
  Report Type: Spontaneous
  Country: US (occurrence: US)
  Receive Date: 20191010
  Receipt Date: 20200408
  Transmission Date: 20200713
  Serious: No
  Sender: FDA-Public Use
  Company Number: US-LEO PHARMA-325579

PATIENT
  Age: 81 Year
  Sex: Male

DRUGS (1)
  1. PICATO [Suspect]
     Active Substance: INGENOL MEBUTATE
     Indication: SCAB
     Route: 061
     Dates: start: 20190925, end: 20190927

REACTIONS (8)
  - Application site papules [Recovered/Resolved]
  - Application site discolouration [Recovered/Resolved]
  - Product administration error [Unknown]
  - Product use in unapproved indication [Unknown]
  - Application site scab [Not Recovered/Not Resolved]
  - Application site pain [Recovered/Resolved]
  - Application site vesicles [Recovered/Resolved]
  - Application site dryness [Recovered/Resolved]
